FAERS Safety Report 20796545 (Version 3)
Quarter: 2022Q2

REPORT INFORMATION
  Report Type: Spontaneous
  Country: DE (occurrence: DE)
  Receive Date: 20220506
  Receipt Date: 20220617
  Transmission Date: 20220721
  Serious: Yes (Other)
  Sender: FDA-Public Use
  Company Number: None

PATIENT
  Age: 71 Year
  Sex: Female

DRUGS (6)
  1. BUDESONIDE [Concomitant]
     Active Substance: BUDESONIDE
     Indication: Asthma
     Dosage: 1 PUFF IN THE EARLY MORNING AND EVENING
     Route: 055
  2. LEVOTHYROXINE SODIUM [Concomitant]
     Active Substance: LEVOTHYROXINE SODIUM
     Indication: Product used for unknown indication
     Dosage: UNKNOWN
     Route: 065
  3. AMLODIPINE [Interacting]
     Active Substance: AMLODIPINE BESYLATE
     Indication: Product used for unknown indication
     Dosage: 5MG EACH IN THE MORNING AND IN THE EVENING
     Route: 065
  4. HYDROCHLOROTHIAZIDE [Interacting]
     Active Substance: HYDROCHLOROTHIAZIDE
     Indication: Product used for unknown indication
     Dosage: EARLY INTAKE
     Route: 065
  5. HYPERICUM PERFORATUM WHOLE [Interacting]
     Active Substance: HYPERICUM PERFORATUM WHOLE
     Indication: Depression
     Dosage: UNKNOWN
     Route: 065
     Dates: start: 20211101, end: 20220411
  6. VALSARTAN [Interacting]
     Active Substance: VALSARTAN
     Indication: Product used for unknown indication
     Dosage: 160 MG EACH IN THE MORNING AND IN THE EVENING
     Route: 065

REACTIONS (6)
  - Panic disorder [Unknown]
  - Anxiety [Unknown]
  - Muscle spasms [Recovering/Resolving]
  - Drug interaction [Unknown]
  - Blood pressure increased [Recovered/Resolved]
  - Arrhythmia [Recovering/Resolving]

NARRATIVE: CASE EVENT DATE: 20210101
